FAERS Safety Report 5474612-0 (Version None)
Quarter: 2007Q3

REPORT INFORMATION
  Report Type: 
  Country: None (occurrence: None)
  Receive Date: 20070928
  Receipt Date: 20070918
  Transmission Date: 20080115
  Serious: Yes (Hospitalization)
  Sender: FDA-Public Use
  Company Number: 2007SP018988

PATIENT
  Age: 50 Year
  Sex: Male
  Weight: 77.1115 kg

DRUGS (8)
  1. SCH 503034  (HCV PROTEASE INHIBITOR) [Concomitant]
     Indication: HEPATITIS C
     Dosage: 800 MG; TID; PO
     Route: 048
     Dates: start: 20070508
  2. PEG-INTRON [Suspect]
     Indication: HEPATITIS C
     Dosage: 120 MCG;QW; SC
     Route: 058
     Dates: start: 20070413
  3. RIBAVIRIN [Suspect]
     Indication: HEPATITIS C
     Dosage: 1000 MG;QD;PO
     Route: 048
     Dates: start: 20070413
  4. MULTI-VITAMIN [Concomitant]
  5. FOLIC ACID [Concomitant]
  6. ACETAMINOPHEN [Concomitant]
  7. PROTONIX [Concomitant]
  8. CLARINEX [Concomitant]

REACTIONS (9)
  - DIARRHOEA [None]
  - HEART RATE INCREASED [None]
  - HYPOTENSION [None]
  - HYPOVOLAEMIA [None]
  - MENTAL STATUS CHANGES [None]
  - NAUSEA [None]
  - PNEUMONIA [None]
  - RENAL FAILURE [None]
  - UNEVALUABLE EVENT [None]
